FAERS Safety Report 4633450-9 (Version None)
Quarter: 2005Q2

REPORT INFORMATION
  Report Type: 
  Country: None (occurrence: None)
  Receive Date: 20050408
  Receipt Date: 20050329
  Transmission Date: 20051028
  Serious: Yes (Death, Other)
  Sender: FDA-Public Use
  Company Number: 2005UW02051

PATIENT
  Age: 42 Year
  Sex: Male

DRUGS (5)
  1. AMITRIPTYLINE HCL TAB [Suspect]
  2. CLOZAPINE [Suspect]
     Indication: SCHIZOPHRENIA
     Dosage: 400 MG QD PO
     Route: 048
     Dates: start: 20010201, end: 20041101
  3. IMIPRAMINE [Suspect]
  4. LUVOX [Concomitant]
  5. BUSPAR [Concomitant]

REACTIONS (6)
  - DRUG TOXICITY [None]
  - INTENTIONAL MISUSE [None]
  - MEDICATION ERROR [None]
  - MULTIPLE DRUG OVERDOSE ACCIDENTAL [None]
  - SCHIZOAFFECTIVE DISORDER [None]
  - SELF-MEDICATION [None]
